FAERS Safety Report 6451375-3 (Version None)
Quarter: 2009Q4

REPORT INFORMATION
  Report Type: 
  Country: None (occurrence: None)
  Receive Date: 20091118
  Receipt Date: 20090804
  Transmission Date: 20100525
  Serious: Yes (Hospitalization)
  Sender: FDA-Public Use
  Company Number: 2009BI016314

PATIENT
  Age: 39 Year
  Sex: Female

DRUGS (2)
  1. TYSABRI [Suspect]
     Indication: MULTIPLE SCLEROSIS
     Dosage: 300 MG;QM;IV
     Route: 042
     Dates: start: 20081016, end: 20090623
  2. ZANAFLEX [Concomitant]

REACTIONS (5)
  - BODY TEMPERATURE INCREASED [None]
  - FACTITIOUS DISORDER [None]
  - MENTAL DISORDER [None]
  - POLLAKIURIA [None]
  - PYREXIA [None]
